FAERS Safety Report 5190931-X (Version None)
Quarter: 2006Q4

REPORT INFORMATION
  Report Type: 
  Country: None (occurrence: None)
  Receive Date: 20061222
  Receipt Date: 20061207
  Transmission Date: 20070319
  Serious: Yes (Hospitalization)
  Sender: FDA-Public Use
  Company Number: FR-ABBOTT-06P-056-0352738-00

PATIENT
  Age: 63 Year
  Sex: Female

DRUGS (5)
  1. DEPAKOTE [Suspect]
     Indication: DYSTHYMIC DISORDER
     Route: 048
     Dates: start: 20060101, end: 20061129
  2. DEPAKOTE [Suspect]
     Route: 048
     Dates: start: 20061130, end: 20061204
  3. DEPAKOTE [Suspect]
     Route: 048
     Dates: start: 20061205
  4. LITHIUM CARBONATE [Interacting]
     Indication: DYSTHYMIC DISORDER
     Route: 048
     Dates: start: 20060801
  5. OLANZAPINE [Concomitant]
     Indication: DRUG USE FOR UNKNOWN INDICATION
     Route: 048

REACTIONS (7)
  - AMMONIA INCREASED [None]
  - CONFUSIONAL STATE [None]
  - DEPRESSION [None]
  - DISORIENTATION [None]
  - MANIA [None]
  - MEMORY IMPAIRMENT [None]
  - PYELONEPHRITIS [None]
